FAERS Safety Report 11746217 (Version 1)
Quarter: 2015Q4

REPORT INFORMATION
  Report Type: Spontaneous
  Country: US (occurrence: None)
  Receive Date: 20151116
  Receipt Date: 20151116
  Transmission Date: 20160304
  Serious: Yes (Disabling, Other)
  Sender: FDA-Public Use
  Company Number: None

PATIENT
  Age: 65 Year
  Sex: Female
  Weight: 66.23 kg

DRUGS (11)
  1. ADDERALL XR [Suspect]
     Active Substance: AMPHETAMINE ASPARTATE\AMPHETAMINE SULFATE\DEXTROAMPHETAMINE SACCHARATE\DEXTROAMPHETAMINE SULFATE
     Indication: DISTURBANCE IN ATTENTION
     Dosage: 1 30 MG ER OR 30MGBROKEN 15MG
     Route: 048
     Dates: start: 20141101, end: 20151115
  2. ADDERALL XR [Suspect]
     Active Substance: AMPHETAMINE ASPARTATE\AMPHETAMINE SULFATE\DEXTROAMPHETAMINE SACCHARATE\DEXTROAMPHETAMINE SULFATE
     Indication: FATIGUE
     Dosage: 1 30 MG ER OR 30MGBROKEN 15MG
     Route: 048
     Dates: start: 20141101, end: 20151115
  3. FOSAMAX [Concomitant]
     Active Substance: ALENDRONATE SODIUM
  4. TENORMIN FOR MVP [Concomitant]
  5. LUNESTA [Concomitant]
     Active Substance: ESZOPICLONE
  6. MULTI VITAMIN [Concomitant]
     Active Substance: VITAMINS
  7. ADDERALL [Suspect]
     Active Substance: AMPHETAMINE ASPARTATE\AMPHETAMINE SULFATE\DEXTROAMPHETAMINE SACCHARATE\DEXTROAMPHETAMINE SULFATE
     Dosage: 30MGBROKEN 15MG
  8. VITAMIN D2 [Concomitant]
     Active Substance: ERGOCALCIFEROL
  9. CELEBREX [Concomitant]
     Active Substance: CELECOXIB
  10. TRAZODONE [Concomitant]
     Active Substance: TRAZODONE HYDROCHLORIDE
  11. XANAX [Concomitant]
     Active Substance: ALPRAZOLAM

REACTIONS (7)
  - Product substitution issue [None]
  - Drug effect variable [None]
  - Psychotic disorder [None]
  - Dissociative disorder [None]
  - Paraesthesia [None]
  - Movement disorder [None]
  - Withdrawal syndrome [None]
